FAERS Safety Report 9290218 (Version 6)
Quarter: 2014Q4

REPORT INFORMATION
  Report Type: Spontaneous
  Country: JP (occurrence: JP)
  Receive Date: 20130515
  Receipt Date: 20141014
  Transmission Date: 20150529
  Serious: Yes (Death, Hospitalization)
  Sender: FDA-Public Use
  Company Number: JP-JNJFOC-20130505105

PATIENT
  Age: 83 Year
  Sex: Male

DRUGS (26)
  1. TRYPTANOL [Concomitant]
     Active Substance: AMITRIPTYLINE
     Indication: INSOMNIA
     Dosage: 1PER 1 DAY
     Route: 048
  2. PLETAAL [Concomitant]
     Active Substance: CILOSTAZOL
     Indication: EMPHYSEMA
     Dosage: 1 MG PER 1 DAY
     Route: 048
  3. NIKORANMART [Concomitant]
     Active Substance: NICORANDIL
     Indication: MYOCARDIAL INFARCTION
     Route: 048
  4. ZANTAC [Concomitant]
     Active Substance: RANITIDINE HYDROCHLORIDE
     Indication: GASTRITIS
     Route: 048
  5. NITROPEN [Concomitant]
     Active Substance: NITROGLYCERIN
     Indication: MYOCARDIAL INFARCTION
     Route: 048
  6. TRAMCET [Suspect]
     Active Substance: ACETAMINOPHEN\TRAMADOL
     Indication: PAIN
     Dosage: 1 PER 1 DAY
     Route: 048
     Dates: start: 20130424, end: 20130424
  7. LYRICA [Concomitant]
     Active Substance: PREGABALIN
     Indication: PAIN
     Dosage: 1 PER 1 DAY
     Route: 048
     Dates: start: 201301, end: 201304
  8. SPIRIVA [Concomitant]
     Active Substance: TIOTROPIUM BROMIDE MONOHYDRATE
     Indication: EMPHYSEMA
     Route: 055
  9. ATORVASTATIN [Concomitant]
     Active Substance: ATORVASTATIN
     Indication: HYPERCHOLESTEROLAEMIA
     Route: 048
  10. DIMETICONE [Concomitant]
     Active Substance: DIMETHICONE
     Indication: CONSTIPATION
     Route: 048
  11. VASOLAN [Concomitant]
     Active Substance: VERAPAMIL HYDROCHLORIDE
     Indication: MYOCARDIAL INFARCTION
     Route: 048
  12. DAIKENTYUTO [Concomitant]
     Active Substance: HERBALS
     Indication: CONSTIPATION
     Route: 048
  13. ZENASPIRIN [Concomitant]
     Indication: EMPHYSEMA
     Route: 048
  14. ZENASPIRIN [Concomitant]
     Indication: MYOCARDIAL INFARCTION
     Route: 048
  15. ALFAROL [Concomitant]
     Active Substance: ALFACALCIDOL
     Indication: OSTEOPOROSIS
     Route: 048
  16. NIKORANMART [Concomitant]
     Active Substance: NICORANDIL
     Indication: EMPHYSEMA
     Route: 048
  17. PECTITE [Concomitant]
     Indication: EMPHYSEMA
     Route: 048
  18. METHYCOBAL [Concomitant]
     Active Substance: METHYLCOBALAMIN
     Indication: NEUROPATHY PERIPHERAL
     Route: 048
  19. SULTANOL [Concomitant]
     Active Substance: ALBUTEROL SULFATE
     Indication: EMPHYSEMA
     Route: 055
  20. MAGMITT [Concomitant]
     Active Substance: MAGNESIUM OXIDE
     Indication: CONSTIPATION
     Route: 048
  21. POLAPREZINC [Concomitant]
     Route: 048
  22. SHINLUCK [Concomitant]
     Indication: CONSTIPATION
     Route: 048
  23. TRAMCET [Suspect]
     Active Substance: ACETAMINOPHEN\TRAMADOL
     Indication: PAIN
     Dosage: 1 PER 1 DAY
     Route: 048
     Dates: start: 20130418
  24. PLETAAL [Concomitant]
     Active Substance: CILOSTAZOL
     Indication: MYOCARDIAL INFARCTION
     Dosage: 1 MG PER 1 DAY
     Route: 048
  25. TRAMCET [Suspect]
     Active Substance: ACETAMINOPHEN\TRAMADOL
     Indication: PAIN
     Dosage: 1 PER 1 DAY
     Route: 048
     Dates: start: 20130313, end: 20130317
  26. URIEF [Concomitant]
     Active Substance: SILODOSIN
     Route: 048

REACTIONS (9)
  - Toxicity to various agents [Recovering/Resolving]
  - Overdose [Unknown]
  - Septic shock [Fatal]
  - Disorientation [Not Recovered/Not Resolved]
  - Loss of consciousness [Not Recovered/Not Resolved]
  - Ileus paralytic [Not Recovered/Not Resolved]
  - Treatment noncompliance [Unknown]
  - Gastrointestinal necrosis [Fatal]
  - Intestinal ischaemia [Fatal]

NARRATIVE: CASE EVENT DATE: 20130424
